FAERS Safety Report 5340030-9 (Version None)
Quarter: 2007Q2

REPORT INFORMATION
  Report Type: 
  Country: None (occurrence: None)
  Receive Date: 20070405
  Receipt Date: 20061102
  Transmission Date: 20071010
  Serious: No
  Sender: FDA-Public Use
  Company Number: US200611000665

PATIENT
  Age: 46 Year
  Sex: Female

DRUGS (3)
  1. CYMBALTA [Suspect]
     Indication: NEURALGIA
     Dosage: 60 MG, DAILY (1/D), ORAL
     Route: 048
     Dates: start: 20051201, end: 20060101
  2. ELMIRON [Concomitant]
  3. HYDROXINE (HYDROXYZINE) [Concomitant]

REACTIONS (4)
  - DRUG INTOLERANCE [None]
  - FEELING ABNORMAL [None]
  - HEART RATE IRREGULAR [None]
  - SLEEP DISORDER [None]
